FAERS Safety Report 6462123-5 (Version None)
Quarter: 2009Q4

REPORT INFORMATION
  Report Type: 
  Country: None (occurrence: None)
  Receive Date: 20091130
  Receipt Date: 20091120
  Transmission Date: 20100525
  Serious: Yes (Other)
  Sender: FDA-Public Use
  Company Number: GXKR2009IE12715

PATIENT
  Age: 43 Year
  Sex: Female
  Weight: 65 kg

DRUGS (1)
  1. DICLAC (NGX) [Suspect]
     Indication: JOINT SPRAIN
     Dosage: 1 DF, BID
     Route: 048
     Dates: start: 20090906

REACTIONS (5)
  - CONTUSION [None]
  - HYPOAESTHESIA [None]
  - OEDEMA PERIPHERAL [None]
  - PAIN [None]
  - PHYSIOTHERAPY [None]
